FAERS Safety Report 17942368 (Version 3)
Quarter: 2020Q3

REPORT INFORMATION
  Report Type: Report from Study
  Country: CO (occurrence: CO)
  Receive Date: 20200624
  Receipt Date: 20200810
  Transmission Date: 20201103
  Serious: Yes (Hospitalization)
  Sender: FDA-Public Use
  Company Number: PHHY2019CO205211

PATIENT
  Age: 49 Year
  Sex: Female
  Weight: 66 kg

DRUGS (12)
  1. VITAMIN D [Concomitant]
     Active Substance: VITAMIN D NOS
     Indication: PRODUCT USED FOR UNKNOWN INDICATION
     Dosage: 5000 IU, QD
     Route: 065
  2. TRIMEBUTINE [Concomitant]
     Active Substance: TRIMEBUTINE
     Indication: GASTROINTESTINAL INFLAMMATION
     Dosage: UNK (WHEN NEEDED)
     Route: 048
  3. DIMETHICONE. [Concomitant]
     Active Substance: DIMETHICONE
     Indication: GASTROINTESTINAL INFLAMMATION
     Dosage: UNK (WHEN NEEDED)
     Route: 048
  4. SANDOSTATIN LAR DEPOT [Suspect]
     Active Substance: OCTREOTIDE ACETATE
     Dosage: 2 DF (TWO APPLICATIONS OF 30 MG)
     Route: 030
     Dates: start: 20191012
  5. MORPHINE [Concomitant]
     Active Substance: MORPHINE
     Indication: ABDOMINAL PAIN
     Dosage: 8 UNK, Q4H (DROPS)
     Route: 048
  6. SANDOSTATIN LAR DEPOT [Suspect]
     Active Substance: OCTREOTIDE ACETATE
     Indication: PANCREATIC NEUROENDOCRINE TUMOUR
     Dosage: 30 MG, QMO
     Route: 030
     Dates: start: 20190619
  7. SANDOSTATIN LAR DEPOT [Suspect]
     Active Substance: OCTREOTIDE ACETATE
  8. SANDOSTATIN [Suspect]
     Active Substance: OCTREOTIDE ACETATE
     Indication: PANCREATIC NEUROENDOCRINE TUMOUR
     Dosage: 0.1 MG, Q8H
     Route: 041
  9. SANDOSTATIN [Suspect]
     Active Substance: OCTREOTIDE ACETATE
     Dosage: 0.1 MG, Q8H
     Route: 041
     Dates: start: 20190814
  10. AMITRIPTYLINE [Concomitant]
     Active Substance: AMITRIPTYLINE
     Indication: PRODUCT USED FOR UNKNOWN INDICATION
     Dosage: UNK
     Route: 048
  11. SANDOSTATIN [Suspect]
     Active Substance: OCTREOTIDE ACETATE
  12. ACETAMINOPHEN. [Concomitant]
     Active Substance: ACETAMINOPHEN
     Indication: ABDOMINAL PAIN
     Dosage: 2 OF 500 MG, Q8H
     Route: 048

REACTIONS (9)
  - Pancreatic neuroendocrine tumour [Unknown]
  - Product leakage [Unknown]
  - Hypertension [Unknown]
  - Abdominal adhesions [Unknown]
  - Intestinal obstruction [Unknown]
  - Asthenia [Unknown]
  - Recurrent cancer [Unknown]
  - Malnutrition [Unknown]
  - Needle issue [Unknown]

NARRATIVE: CASE EVENT DATE: 201908
